FAERS Safety Report 5037834-9 (Version None)
Quarter: 2006Q2

REPORT INFORMATION
  Report Type: 
  Country: None (occurrence: None)
  Receive Date: 20060601
  Receipt Date: 20060120
  Transmission Date: 20061013
  Serious: Yes (Hospitalization)
  Sender: FDA-Public Use
  Company Number: 2005US001871

PATIENT
  Age: 61 Year
  Sex: Female

DRUGS (10)
  1. PROGRAF [Suspect]
     Indication: PROPHYLAXIS AGAINST TRANSPLANT REJECTION
     Dosage: 5 MG, UID/QD
     Dates: start: 20010501
  2. CELLCEPT [Concomitant]
  3. PREDNISONE TAB [Concomitant]
  4. ADALAT CC [Concomitant]
  5. PEPCID [Concomitant]
  6. SEPTRA [Concomitant]
  7. LEXAPRO [Concomitant]
  8. FOLIC ACID [Concomitant]
  9. LASIX [Concomitant]
  10. COLACE (DOCUSATE SODIUM) [Concomitant]

REACTIONS (2)
  - HYPOAESTHESIA ORAL [None]
  - PARAESTHESIA ORAL [None]
